FAERS Safety Report 4948723-X (Version None)
Quarter: 2006Q1

REPORT INFORMATION
  Report Type: 
  Country: None (occurrence: None)
  Receive Date: 20060314
  Receipt Date: 20060307
  Transmission Date: 20060701
  Serious: Yes (Other)
  Sender: FDA-Public Use
  Company Number: HQWYE170907MAR06

PATIENT
  Sex: Male

DRUGS (3)
  1. INDERAL [Suspect]
  2. ASACOL [Suspect]
     Dosage: 3 TO 6 TABLETS, ORAL
     Route: 048
  3. PREDNISOLONE [Suspect]
     Indication: COLITIS
     Dosage: 40 MG,

REACTIONS (1)
  - CONGENITAL HEARING DISORDER [None]
